FAERS Safety Report 6551512-6 (Version None)
Quarter: 2010Q1

REPORT INFORMATION
  Report Type: 
  Country: None (occurrence: None)
  Receive Date: 20100120
  Receipt Date: 20100108
  Transmission Date: 20100710
  Serious: Yes (Hospitalization)
  Sender: FDA-Public Use
  Company Number: 004283

PATIENT

DRUGS (3)
  1. KEPPRA [Suspect]
     Indication: EPILEPSY
  2. HYDROXYCHLOROQUINE SULFATE [Suspect]
     Indication: ARTHRITIS
  3. HYDROXYCHLOROQUINE SULFATE [Suspect]
     Indication: RHEUMATOID ARTHRITIS

REACTIONS (1)
  - DRUG INTERACTION [None]
